FAERS Safety Report 8908965 (Version 3)
Quarter: 2013Q3

REPORT INFORMATION
  Report Type: Report from Study
  Country: JP (occurrence: JP)
  Receive Date: 20121114
  Receipt Date: 20130822
  Transmission Date: 20140515
  Serious: Yes (Hospitalization, Other)
  Sender: FDA-Public Use
  Company Number: JP-VERTEX PHARMACEUTICAL INC.-AE-2012-002358

PATIENT
  Age: 66 Year
  Sex: Male

DRUGS (15)
  1. VX-950 (TELAPREVIR) [Suspect]
     Indication: CHRONIC HEPATITIS C
     Dosage: 2250 MG, QD
     Route: 048
     Dates: start: 20120111, end: 20120214
  2. VX-950 (TELAPREVIR) [Suspect]
     Dosage: 1500 MG, QD
     Route: 048
     Dates: start: 20120215, end: 20120403
  3. PEGINTERFERON ALFA-2B [Suspect]
     Indication: CHRONIC HEPATITIS C
     Dosage: 1.5 ?G/KG, QW
     Route: 058
     Dates: start: 20120111, end: 20120620
  4. REBETOL [Suspect]
     Indication: CHRONIC HEPATITIS C
     Dosage: 800 MG, QD
     Route: 048
     Dates: start: 20120111, end: 20120131
  5. REBETOL [Suspect]
     Dosage: 400 MG, QD
     Route: 048
     Dates: start: 20120201, end: 20120214
  6. REBETOL [Suspect]
     Dosage: 200 MG, QD
     Route: 048
     Dates: start: 20120215, end: 20120508
  7. REBETOL [Suspect]
     Dosage: 400 MG, QD
     Route: 048
     Dates: start: 20120509, end: 20120515
  8. REBETOL [Suspect]
     Dosage: 600 MG, QD
     Route: 048
     Dates: start: 20120516, end: 20120626
  9. SEIBULE [Concomitant]
     Dosage: 150 MG, QD
     Route: 048
  10. OMEPRAL [Concomitant]
     Dosage: 10 MG, QD
     Route: 048
  11. LASIX [Concomitant]
     Dosage: 20 MG, QD
     Route: 048
  12. MAGMITT [Concomitant]
     Dosage: 660 MG, QD
     Route: 048
  13. JUZEN-TAIHO-TO [Concomitant]
     Dosage: 7.5 G, QD
     Route: 048
  14. CELECOX [Concomitant]
     Dosage: 200 MG, QD
     Route: 048
  15. GASTROM [Concomitant]
     Dosage: 3 G, QD
     Route: 048

REACTIONS (3)
  - Prostatitis [Recovered/Resolved]
  - Anaemia [Recovered/Resolved]
  - Haemoglobin decreased [Recovered/Resolved]
